FAERS Safety Report 17022979 (Version 3)
Quarter: 2019Q4

REPORT INFORMATION
  Report Type: Spontaneous
  Country: US (occurrence: US)
  Receive Date: 20191112
  Receipt Date: 20191220
  Transmission Date: 20200122
  Serious: Yes (Life-Threatening, Hospitalization, Other)
  Sender: FDA-Public Use
  Company Number: US-SHIRE-US201938713

PATIENT
  Sex: Female

DRUGS (3)
  1. CITRACAL [CALCIUM CITRATE] [Concomitant]
     Active Substance: CALCIUM CITRATE
     Indication: HYPOPARATHYROIDISM
  2. NATPARA (PARATHYROID HORMONE) [Suspect]
     Active Substance: PARATHYROID HORMONE
     Indication: HYPOPARATHYROIDISM
     Dosage: 75 MICROGRAM
     Route: 065
  3. CALCITRIOL. [Concomitant]
     Active Substance: CALCITRIOL
     Indication: HYPOPARATHYROIDISM

REACTIONS (4)
  - Recalled product [Unknown]
  - Renal disorder [Unknown]
  - Condition aggravated [Unknown]
  - Hypocalcaemia [Unknown]
